FAERS Safety Report 6835799-8 (Version None)
Quarter: 2010Q3

REPORT INFORMATION
  Report Type: 
  Country: None (occurrence: None)
  Receive Date: 20100713
  Receipt Date: 20100708
  Transmission Date: 20110219
  Serious: Yes (Death, Other)
  Sender: FDA-Public Use
  Company Number: FR-CELGENEUS-056-21880-10070691

PATIENT

DRUGS (8)
  1. REVLIMID [Suspect]
     Route: 048
  2. REVLIMID [Suspect]
  3. DAUNORUBICIN HCL [Concomitant]
     Route: 065
  4. DAUNORUBICIN HCL [Concomitant]
  5. CYTARABINE [Concomitant]
     Route: 065
  6. CYTARABINE [Concomitant]
  7. NEUPOGEN [Concomitant]
     Route: 065
  8. NEUPOGEN [Concomitant]

REACTIONS (4)
  - BLOOD BILIRUBIN INCREASED [None]
  - FUNGAL INFECTION [None]
  - MULTI-ORGAN FAILURE [None]
  - SEPSIS [None]
